FAERS Safety Report 13331534 (Version 1)
Quarter: 2017Q1

REPORT INFORMATION
  Report Type: Spontaneous
  Country: US (occurrence: US)
  Receive Date: 20170313
  Receipt Date: 20170313
  Transmission Date: 20170428
  Serious: Yes (Hospitalization)
  Sender: FDA-Public Use
  Company Number: None

PATIENT
  Age: 87 Year
  Sex: Female

DRUGS (9)
  1. METFORMIN [Concomitant]
     Active Substance: METFORMIN HYDROCHLORIDE
  2. METAMUCIL [Concomitant]
     Active Substance: PLANTAGO SEED
  3. PROLIA [Suspect]
     Active Substance: DENOSUMAB
     Indication: SENILE OSTEOPOROSIS
     Dosage: Q 6 MONTHS
     Route: 058
     Dates: start: 20160329
  4. SIMVASTATIN. [Concomitant]
     Active Substance: SIMVASTATIN
  5. AMLOD/BENAZP [Concomitant]
  6. ECOTRIN [Concomitant]
     Active Substance: ASPIRIN
  7. PRESERVISION [Concomitant]
     Active Substance: MINERALS\VITAMINS
  8. ATENOLOL. [Concomitant]
     Active Substance: ATENOLOL
  9. LANCETS [Concomitant]
     Active Substance: DEVICE

REACTIONS (1)
  - Pneumonia [None]
